FAERS Safety Report 5507073-3 (Version None)
Quarter: 2007Q4

REPORT INFORMATION
  Report Type: 
  Country: None (occurrence: None)
  Receive Date: 20071102
  Receipt Date: 20071019
  Transmission Date: 20080405
  Serious: Yes (Hospitalization)
  Sender: FDA-Public Use
  Company Number: ALK_00433_2007

PATIENT
  Sex: Female
  Weight: 55.3388 kg

DRUGS (7)
  1. VIVITROL [Suspect]
     Indication: ALCOHOLISM
     Dosage: (380 MG 1X/MONTH INTRAMUSCULAR)
     Route: 030
     Dates: start: 20070816, end: 20070916
  2. NICODERM [Concomitant]
  3. LAMICTAL [Concomitant]
  4. SEROQUEL [Concomitant]
  5. PREMARIN [Concomitant]
  6. ADVAIR DISKUS 100/50 [Concomitant]
  7. ALBUTEROL [Concomitant]

REACTIONS (14)
  - AGEUSIA [None]
  - ANAESTHETIC COMPLICATION [None]
  - ANOREXIA [None]
  - DRUG INEFFECTIVE [None]
  - DRUG INTERACTION [None]
  - EXCORIATION [None]
  - HEADACHE [None]
  - INJECTION SITE ERYTHEMA [None]
  - INJECTION SITE INDURATION [None]
  - INJECTION SITE NODULE [None]
  - INJECTION SITE PAIN [None]
  - INJECTION SITE PRURITUS [None]
  - PAIN [None]
  - SPINAL FUSION SURGERY [None]
